FAERS Safety Report 26083710 (Version 2)
Quarter: 2025Q4

REPORT INFORMATION
  Report Type: Report from Study
  Country: US (occurrence: US)
  Receive Date: 20251124
  Receipt Date: 20251225
  Transmission Date: 20260118
  Serious: Yes (Death)
  Sender: BAUSCH AND LOMB
  Company Number: US-BAUSCH-BH-2025-020771

PATIENT
  Age: 69 Year
  Sex: Female

DRUGS (1)
  1. XIFAXAN [Suspect]
     Active Substance: RIFAXIMIN
     Indication: Product used for unknown indication
     Route: 065

REACTIONS (4)
  - Pulseless electrical activity [Fatal]
  - Hypovolaemic shock [Fatal]
  - Post procedural haemorrhage [Fatal]
  - Metabolic dysfunction-associated steatohepatitis [Fatal]
